FAERS Safety Report 7918130 (Version 3)
Quarter: 2013Q2

REPORT INFORMATION
  Report Type: Spontaneous
  Country: US (occurrence: US)
  Receive Date: 20110428
  Receipt Date: 20130429
  Transmission Date: 20140414
  Serious: No
  Sender: FDA-Public Use
  Company Number: US-ASTRAZENECA-2010SE52668

PATIENT
  Age: 47 Year
  Sex: Female
  Weight: 111.6 kg

DRUGS (26)
  1. ZOMIG [Suspect]
     Indication: HEADACHE
     Route: 045
     Dates: start: 2008
  2. ZOMIG [Suspect]
     Indication: HEADACHE
     Route: 045
     Dates: start: 2005
  3. ZOMIG [Suspect]
     Indication: HEADACHE
     Route: 048
     Dates: start: 2005
  4. ZOMIG [Suspect]
     Indication: HEADACHE
     Route: 045
     Dates: start: 201211
  5. ZOMIG [Suspect]
     Indication: HEADACHE
     Route: 045
     Dates: start: 201211
  6. SEROQUEL [Suspect]
     Indication: SLEEP DISORDER
     Route: 048
  7. IBUPROFEN [Concomitant]
     Indication: HEADACHE
     Route: 048
     Dates: start: 1975
  8. TRIAMTERENE HCTZ [Concomitant]
     Indication: HYPERTENSION
     Dosage: 37.5/25 MG DAILY
     Route: 048
  9. NADOLOL [Concomitant]
     Indication: HEADACHE
     Route: 048
     Dates: start: 200512
  10. BRAND EFFEXOR [Concomitant]
     Indication: HEADACHE
     Route: 048
     Dates: start: 200512
  11. GABAPENTIN [Concomitant]
     Indication: HEADACHE
     Route: 048
     Dates: start: 201010
  12. METHERGINE [Concomitant]
     Indication: HEADACHE
     Route: 048
     Dates: start: 2007
  13. NAMINDA [Concomitant]
     Route: 048
  14. LEXAPRO [Concomitant]
     Route: 048
  15. BUSPIRONE [Concomitant]
     Route: 048
  16. METFORMIN ER [Concomitant]
     Indication: DIABETES MELLITUS
     Route: 048
  17. SIMVASTATIN [Concomitant]
     Indication: BLOOD CHOLESTEROL ABNORMAL
     Route: 048
  18. FENOFIBRATE [Concomitant]
     Indication: BLOOD CHOLESTEROL ABNORMAL
     Route: 048
     Dates: start: 201101
  19. BRAND SYNTHROIDS [Concomitant]
     Dosage: 0.175MG IN AN EMPTY STOMACH MONDAYS, WEDNESDAY AND FRIDAYS AND
  20. NIACIN [Concomitant]
     Dates: start: 201107
  21. VITAMINS [Concomitant]
     Dosage: AT AM
  22. VITAMIN C [Concomitant]
     Dosage: AT SUPPER
  23. CALCIUM [Concomitant]
  24. FLACCID OIL [Concomitant]
  25. FISH OIL [Concomitant]
  26. MELATONIN [Concomitant]

REACTIONS (14)
  - Anaemia [Unknown]
  - Depression [Unknown]
  - Diabetes mellitus [Unknown]
  - Gastrooesophageal reflux disease [Unknown]
  - Dysphonia [Recovered/Resolved]
  - Hypertension [Unknown]
  - Irritable bowel syndrome [Unknown]
  - Blood triglycerides abnormal [Unknown]
  - Sleep disorder [Unknown]
  - Thyroid disorder [Unknown]
  - Headache [Unknown]
  - Drug ineffective for unapproved indication [Unknown]
  - Drug dose omission [Unknown]
  - Incorrect route of drug administration [Recovered/Resolved]
